FAERS Safety Report 11077275 (Version 1)
Quarter: 2015Q2

REPORT INFORMATION
  Report Type: Spontaneous
  Country: CH (occurrence: CH)
  Receive Date: 20150429
  Receipt Date: 20150429
  Transmission Date: 20150821
  Serious: Yes (Disabling)
  Sender: FDA-Public Use
  Company Number: PHHY2015CH046123

PATIENT
  Age: 55 Year
  Sex: Female
  Weight: 73 kg

DRUGS (4)
  1. FLUOXETIN MEPHA [Suspect]
     Active Substance: FLUOXETINE HYDROCHLORIDE
     Indication: BIPOLAR DISORDER
     Dosage: 1 DF, QD
     Route: 048
  2. ZYPREXA [Concomitant]
     Active Substance: OLANZAPINE
     Indication: PRODUCT USED FOR UNKNOWN INDICATION
     Route: 065
  3. TEGRETOL [Suspect]
     Active Substance: CARBAMAZEPINE
     Indication: BIPOLAR DISORDER
     Dosage: 2 DF, BID
     Route: 048
  4. LITHIOFOR [Suspect]
     Active Substance: LITHIUM SULFATE
     Indication: BIPOLAR I DISORDER
     Dosage: 1.5 MG, QD
     Route: 048
     Dates: end: 20140530

REACTIONS (8)
  - Adjusted calcium [Recovered/Resolved]
  - Renal failure [Not Recovered/Not Resolved]
  - Toxicity to various agents [Recovered/Resolved]
  - Somnolence [Recovered/Resolved]
  - Diplopia [Recovered/Resolved]
  - Nystagmus [Recovered/Resolved]
  - Ataxia [Recovered/Resolved]
  - Tremor [Recovered/Resolved]

NARRATIVE: CASE EVENT DATE: 20140430
